FAERS Safety Report 7911139-8 (Version None)
Quarter: 2011Q4

REPORT INFORMATION
  Report Type: 
  Country: None (occurrence: None)
  Receive Date: 20111109
  Receipt Date: 20111028
  Transmission Date: 20120403
  Serious: Yes (Hospitalization, Other)
  Sender: FDA-Public Use
  Company Number: AUR-APL-2011-05710

PATIENT
  Age: 70 Year
  Sex: Female

DRUGS (8)
  1. OMEPRAZOLE [Concomitant]
  2. SIMVASTATIN [Suspect]
     Indication: PRODUCT USED FOR UNKNOWN INDICATION
     Dosage: 20 MG (20 MG, 1 IN 1 D),
  3. CYCLOSPORINE [Suspect]
     Indication: SKIN LESION
     Dosage: 200 MG (100 MG, 2 IN 1 D),
  4. BISOPROLOL [Concomitant]
  5. KETOCONAZOLE [Suspect]
     Indication: SKIN LESION
     Dosage: 200 MG (200 MG, 1 IN 1 D),
  6. VALSARTAN/HYDROCHLORIDE (CO-DIOVAN) [Concomitant]
  7. ALPRAZOLAM [Concomitant]
  8. ACETYLSALICYLIC ACID SRT [Concomitant]

REACTIONS (11)
  - RHABDOMYOLYSIS [None]
  - CONFUSIONAL STATE [None]
  - ASTHENIA [None]
  - LIVER DISORDER [None]
  - CONVULSION [None]
  - TREMOR [None]
  - SKIN LESION [None]
  - MALAISE [None]
  - HEADACHE [None]
  - MYALGIA [None]
  - RENAL FAILURE ACUTE [None]
